FAERS Safety Report 26149198 (Version 1)
Quarter: 2025Q4

REPORT INFORMATION
  Report Type: Spontaneous
  Country: US (occurrence: US)
  Receive Date: 20251212
  Receipt Date: 20251212
  Transmission Date: 20260117
  Serious: No
  Sender: ABBVIE
  Company Number: US-ABBVIE-6585472

PATIENT
  Age: 14 Year
  Sex: Female
  Weight: 53.977 kg

DRUGS (1)
  1. LUPRON [Suspect]
     Active Substance: LEUPROLIDE ACETATE
     Indication: Precocious puberty
     Dosage: FORM STRENGTH: 30 MILLIGRAMS
     Route: 058
     Dates: start: 201811, end: 2021

REACTIONS (2)
  - Amenorrhoea [Not Recovered/Not Resolved]
  - Ovarian failure [Not Recovered/Not Resolved]

NARRATIVE: CASE EVENT DATE: 20241201
